FAERS Safety Report 11080241 (Version 5)
Quarter: 2015Q4

REPORT INFORMATION
  Report Type: Spontaneous
  Country: US (occurrence: US)
  Receive Date: 20150430
  Receipt Date: 20151124
  Transmission Date: 20160304
  Serious: Yes (Congenital Anomaly, Other)
  Sender: FDA-Public Use
  Company Number: US-ELI_LILLY_AND_COMPANY-US201504007945

PATIENT

DRUGS (1)
  1. PROZAC [Suspect]
     Active Substance: FLUOXETINE HYDROCHLORIDE
     Indication: PRODUCT USED FOR UNKNOWN INDICATION
     Dosage: 20 MG, QD
     Route: 064

REACTIONS (8)
  - Speech disorder developmental [Not Recovered/Not Resolved]
  - Otitis media [Unknown]
  - Foetal exposure during pregnancy [Recovered/Resolved]
  - Anomaly of middle ear congenital [Not Recovered/Not Resolved]
  - Vestibular disorder [Not Recovered/Not Resolved]
  - Deafness [Recovered/Resolved]
  - Mixed deafness [Not Recovered/Not Resolved]
  - Pharyngotonsillitis [Unknown]
